FAERS Safety Report 8142623-2 (Version None)
Quarter: 2012Q1

REPORT INFORMATION
  Report Type: 
  Country: None (occurrence: None)
  Receive Date: 20120216
  Receipt Date: 20120209
  Transmission Date: 20120608
  Serious: Yes (Other)
  Sender: FDA-Public Use
  Company Number: BR-ABBOTT-11P-020-0880421-00

PATIENT
  Sex: Female
  Weight: 82 kg

DRUGS (15)
  1. NIMESULIDE [Concomitant]
     Indication: ANTIINFLAMMATORY THERAPY
     Route: 048
     Dates: start: 20070101
  2. PREDNISONE TAB [Concomitant]
     Indication: ANTIINFLAMMATORY THERAPY
     Route: 048
     Dates: start: 20070101
  3. CYCLOBENZAPRINE [Concomitant]
     Indication: INITIAL INSOMNIA
  4. HUMIRA [Suspect]
     Dates: end: 20120201
  5. CYCLOBENZAPRINE [Concomitant]
     Indication: MUSCLE RELAXANT THERAPY
     Route: 048
     Dates: start: 20070101
  6. ARAVA [Concomitant]
     Indication: ARTHROPATHY
     Route: 048
     Dates: start: 20070101
  7. ARAVA [Concomitant]
     Indication: PROPHYLAXIS
  8. TRAMADOL HYDROCHLORIDE [Concomitant]
     Indication: PAIN
     Route: 048
     Dates: start: 20070101
  9. FLUOXETINE [Concomitant]
     Indication: ANXIETY
     Route: 048
     Dates: start: 20070101
  10. KETOROLAC TROMETHAMINE [Concomitant]
     Indication: PAIN
     Route: 060
     Dates: start: 20070101
  11. OMEPRAZOLE [Concomitant]
     Indication: GASTRIC DISORDER
     Route: 048
     Dates: start: 20070101
  12. HUMIRA [Suspect]
     Indication: RHEUMATOID ARTHRITIS
     Route: 058
     Dates: start: 20101201
  13. HUMIRA [Suspect]
  14. CLONAZEPAM [Concomitant]
     Indication: INITIAL INSOMNIA
     Dosage: AT NIGHT
     Route: 048
     Dates: start: 20070101
  15. PARACETAMOL [Concomitant]
     Indication: PAIN
     Dosage: 2 OR 3 TABLETS PER DAY
     Route: 048
     Dates: start: 20070101

REACTIONS (11)
  - ARTHRITIS [None]
  - DRUG INEFFECTIVE [None]
  - OSTEOARTHRITIS [None]
  - JOINT EFFUSION [None]
  - SYNOVITIS [None]
  - FEMALE STERILISATION [None]
  - FOREIGN BODY [None]
  - POSTOPERATIVE WOUND INFECTION [None]
  - PURULENT DISCHARGE [None]
  - URINARY TRACT INFECTION [None]
  - MENISCUS LESION [None]
